FAERS Safety Report 9850181 (Version 1)
Quarter: 2014Q1

REPORT INFORMATION
  Report Type: Spontaneous
  Country: US (occurrence: US)
  Receive Date: 20140128
  Receipt Date: 20140128
  Transmission Date: 20141002
  Serious: Yes (Hospitalization, Other)
  Sender: FDA-Public Use
  Company Number: US-GILEAD-2014-0093005

PATIENT
  Sex: Male

DRUGS (5)
  1. LETAIRIS [Suspect]
     Indication: PRODUCT USED FOR UNKNOWN INDICATION
     Dosage: 10 MG, QD
     Route: 065
     Dates: start: 20120621
  2. ADCIRCA [Concomitant]
     Dosage: 20 MG, BID
  3. ASPIRIN [Concomitant]
  4. LIPTOR [Concomitant]
  5. ALBUTEROL                          /00139501/ [Concomitant]

REACTIONS (2)
  - Respiratory failure [Recovering/Resolving]
  - Pleural effusion [Recovering/Resolving]
